FAERS Safety Report 21806791 (Version 1)
Quarter: 2023Q1

REPORT INFORMATION
  Report Type: Spontaneous
  Country: GB (occurrence: GB)
  Receive Date: 20230102
  Receipt Date: 20230102
  Transmission Date: 20230417
  Serious: Yes (Other)
  Sender: FDA-Public Use
  Company Number: None

PATIENT
  Age: 82 Year
  Sex: Male
  Weight: 65 kg

DRUGS (12)
  1. LISINOPRIL [Suspect]
     Active Substance: LISINOPRIL
     Indication: Product used for unknown indication
     Dosage: THERAPY END DATE : NASK
     Dates: start: 20221220
  2. AZATHIOPRINE [Concomitant]
     Active Substance: AZATHIOPRINE
     Indication: Product used for unknown indication
     Dosage: 4 DOSAGE FORMS DAILY; IN THE MORNING ( M, UNIT DOSE : 4 DF, OD, DURATION : 1208 DAYS
     Dates: start: 20190830, end: 20221220
  3. CITALOPRAM [Concomitant]
     Active Substance: CITALOPRAM HYDROBROMIDE
     Indication: Product used for unknown indication
     Dosage: 1 DOSAGE FORMS DAILY; 1 DF, OD, DURATION : 1208 DAYS
     Dates: start: 20190830, end: 20221220
  4. CLOPIDOGREL [Concomitant]
     Active Substance: CLOPIDOGREL BISULFATE
     Indication: Product used for unknown indication
     Dosage: 1 DOSAGE FORMS DAILY; 1 DF, OD, DURATION : 1208 DAYS
     Dates: start: 20190830, end: 20221220
  5. MODERNA COVID-19 VACCINE [Concomitant]
     Active Substance: ELASOMERAN
     Indication: COVID-19 immunisation
     Dosage: 0.5 ML, DURATION : 1 DAY
     Route: 030
     Dates: start: 20221014, end: 20221014
  6. CYANOCOBALAMIN [Concomitant]
     Active Substance: CYANOCOBALAMIN
     Indication: Product used for unknown indication
     Dosage: 1 DOSAGE FORMS DAILY; REPEAT BLOOD TEST WHE, 1 DF, OD, DURATION : 1 DAY
     Dates: start: 20221027, end: 20221027
  7. HYDROXOCOBALAMIN [Concomitant]
     Active Substance: HYDROXOCOBALAMIN
     Indication: Product used for unknown indication
     Dosage: REPEAT BLOODS IN 8 WEEKS, UNIT DOSE : 1 MG, DURATION : 1 DAY
     Route: 030
     Dates: start: 20221027, end: 20221028
  8. LANSOPRAZOLE [Concomitant]
     Active Substance: LANSOPRAZOLE
     Indication: Product used for unknown indication
     Dosage: 1 DOSAGE FORMS DAILY; 1 DF, OD, DURATION : 1208 DAYS
     Dates: start: 20190830, end: 20221220
  9. LOPERAMIDE [Concomitant]
     Active Substance: LOPERAMIDE
     Indication: Product used for unknown indication
     Dosage: 1-2 THREE TIMES A DAY AS REQUIRED, DURATION : 28 DAYS
     Dates: start: 20221122, end: 20221220
  10. METFORMIN [Concomitant]
     Active Substance: METFORMIN HYDROCHLORIDE
     Indication: Product used for unknown indication
     Dosage: 3 DOSAGE FORMS DAILY; WITH BREAKFAST, LUNCH AND EVENI., UNIT DOSE : 1 DF, FREQUENCY : 3 TIMES A DAY,
     Dates: start: 20190830, end: 20221220
  11. NITROFURANTOIN [Concomitant]
     Active Substance: NITROFURANTOIN
     Indication: Product used for unknown indication
     Dosage: 2 DOSAGE FORMS DAILY; 1 DF, BD, DURATION : 1 DAY
     Dates: start: 20221130, end: 20221201
  12. PYRIDOSTIGMINE BROMIDE [Concomitant]
     Active Substance: PYRIDOSTIGMINE BROMIDE
     Indication: Product used for unknown indication
     Dosage: 3 DOSAGE FORMS DAILY; 1 DF, 3 TIMES A DAY, DURATION : 1051 DAYS
     Dates: start: 20200203, end: 20221220

REACTIONS (1)
  - Acute kidney injury [Recovered/Resolved]

NARRATIVE: CASE EVENT DATE: 20221220
